FAERS Safety Report 12169467 (Version 2)
Quarter: 2016Q2

REPORT INFORMATION
  Report Type: Spontaneous
  Country: IE (occurrence: IE)
  Receive Date: 20160310
  Receipt Date: 20160404
  Transmission Date: 20160815
  Serious: Yes (Hospitalization)
  Sender: FDA-Public Use
  Company Number: IE-PFIZER INC-2016080457

PATIENT
  Age: 14 Year
  Sex: Male
  Weight: 43 kg

DRUGS (3)
  1. GENOTROPIN [Suspect]
     Active Substance: SOMATROPIN
     Dosage: 1.05 MG, UNK
     Route: 058
  2. GENOTROPIN [Suspect]
     Active Substance: SOMATROPIN
     Indication: GROWTH HORMONE DEFICIENCY
     Dosage: 0.6
     Dates: start: 20151207
  3. GENOTROPIN [Suspect]
     Active Substance: SOMATROPIN
     Dosage: 1.5
     Dates: start: 20151222

REACTIONS (4)
  - Arthropathy [Recovered/Resolved]
  - Gait disturbance [Unknown]
  - Injection site haemorrhage [Recovered/Resolved]
  - Ligament disorder [Not Recovered/Not Resolved]

NARRATIVE: CASE EVENT DATE: 201512
